FAERS Safety Report 5622340-0 (Version None)
Quarter: 2008Q1

REPORT INFORMATION
  Report Type: 
  Country: None (occurrence: None)
  Receive Date: 20080114
  Receipt Date: 20070713
  Transmission Date: 20080703
  Serious: Yes (Other)
  Sender: FDA-Public Use
  Company Number: A03200704629

PATIENT
  Sex: Male

DRUGS (1)
  1. PLAVIX [Suspect]
     Dosage: ORAL
     Route: 048

REACTIONS (4)
  - ASTHENIA [None]
  - LOSS OF CONSCIOUSNESS [None]
  - TONGUE INJURY [None]
  - WOUND HAEMORRHAGE [None]
